FAERS Safety Report 14949716 (Version 1)
Quarter: 2018Q2

REPORT INFORMATION
  Report Type: Spontaneous
  Country: FR (occurrence: FR)
  Receive Date: 20180529
  Receipt Date: 20180529
  Transmission Date: 20180711
  Serious: Yes (Other)
  Sender: FDA-Public Use
  Company Number: FR-MERCK KGAA-2048624

PATIENT
  Age: 56 Year
  Sex: Female

DRUGS (1)
  1. NOVOTHYROX [Suspect]
     Active Substance: LEVOTHYROXINE SODIUM
     Indication: PRODUCT USED FOR UNKNOWN INDICATION
     Dates: start: 20170412, end: 201709

REACTIONS (20)
  - Tendonitis [Recovered/Resolved]
  - Fear [Recovered/Resolved]
  - Feeding disorder [Recovered/Resolved]
  - Gastrointestinal pain [Recovered/Resolved]
  - Loss of personal independence in daily activities [Recovered/Resolved]
  - Decreased activity [Recovered/Resolved]
  - Insomnia [Recovered/Resolved]
  - Weight decreased [Recovered/Resolved]
  - Arthralgia [Recovered/Resolved]
  - Social avoidant behaviour [Recovered/Resolved]
  - Impaired work ability [Recovered/Resolved]
  - Feeling abnormal [Recovered/Resolved]
  - Periarthritis [Recovered/Resolved]
  - Mood altered [Recovered/Resolved]
  - Muscle spasms [Recovered/Resolved]
  - Tendon disorder [Recovered/Resolved]
  - Bipolar disorder [Recovered/Resolved]
  - Pain [Recovered/Resolved]
  - Impaired driving ability [Recovered/Resolved]
  - Fatigue [Recovered/Resolved]

NARRATIVE: CASE EVENT DATE: 2017
